FAERS Safety Report 8872269 (Version 1)
Quarter: 2012Q4

REPORT INFORMATION
  Report Type: 
  Country: US (occurrence: US)
  Receive Date: 20121030
  Receipt Date: 20121030
  Transmission Date: 20130627
  Serious: Yes (Life-Threatening)
  Sender: FDA-Public Use
  Company Number: US-009507513-1210USA013735

PATIENT
  Age: 54 Year
  Sex: Female

DRUGS (1)
  1. VICTRELIS [Suspect]
     Indication: HEPATITIS C
     Dosage: 800 mg, tid
     Route: 048
     Dates: start: 20120813

REACTIONS (1)
  - Suicidal ideation [Unknown]
